FAERS Safety Report 4279245-X (Version None)
Quarter: 2004Q1

REPORT INFORMATION
  Report Type: 
  Country: None (occurrence: None)
  Receive Date: 20040122
  Receipt Date: 20040116
  Transmission Date: 20041129
  Serious: Yes (Hospitalization)
  Sender: FDA-Public Use
  Company Number: 2004193420FR

PATIENT
  Age: 74 Year
  Sex: Female

DRUGS (10)
  1. FRAGMIN [Suspect]
     Dosage: 5000 IU,DAILY, SUBCUTANEOUS
     Route: 058
     Dates: start: 20031113
  2. MEPRONIZINE (ACEPROMETAZINE, MEPROBAMATE) [Suspect]
     Dosage: 1 DF, DAILY, ORAL
     Route: 048
     Dates: start: 20031113, end: 20031210
  3. DEBRIDAT ^JOUVEINAL^ (TRIMEBUTINE MALEATE) [Suspect]
     Dosage: 2 DF, TID, ORAL
     Route: 048
     Dates: start: 20031117
  4. EDUCTYL (SODIUM BICARBONATE, POTASSIUM BITARTRATE) [Suspect]
     Dosage: 1 DF , DAILY, RECTAL
     Route: 054
     Dates: start: 20031114
  5. FORLAXAN (MACROGOL) [Suspect]
     Dosage: 2 DF, DAILY, ORAL
     Route: 048
     Dates: start: 20031114
  6. VALIUM [Suspect]
     Dosage: 5 MG, DAILY, ORAL
     Route: 048
     Dates: start: 20031113, end: 20031126
  7. PAROXETINE HCL [Suspect]
     Dosage: 20 MG, DAILY, ORAL
     Route: 048
     Dates: start: 20031113, end: 20031128
  8. LEXOMIL (BROMAZEPAM) [Suspect]
     Dosage: 3 MG, DAILY, ORAL
     Route: 048
     Dates: start: 20031112, end: 20031210
  9. HYPERIUM (RILMENIDINE) [Suspect]
     Dosage: 1 MG, DAILY, ORAL
     Route: 048
     Dates: start: 20031113, end: 20031210
  10. NOROXIN [Suspect]
     Dosage: 400 MG, BID, ORAL
     Route: 048
     Dates: start: 20031119, end: 20031126

REACTIONS (3)
  - CUTANEOUS VASCULITIS [None]
  - DERMATITIS BULLOUS [None]
  - PEMPHIGOID [None]
